FAERS Safety Report 20044312 (Version 1)
Quarter: 2021Q4

REPORT INFORMATION
  Report Type: Spontaneous
  Country: JP (occurrence: JP)
  Receive Date: 20211108
  Receipt Date: 20211108
  Transmission Date: 20220303
  Serious: Yes (Hospitalization, Other)
  Sender: FDA-Public Use
  Company Number: JP-PFIZER INC-202101441329

PATIENT
  Age: 33 Year
  Sex: Male

DRUGS (4)
  1. ALPRAZOLAM [Suspect]
     Active Substance: ALPRAZOLAM
     Dosage: 61.6 MG
  2. CHLORPROMAZINE [Suspect]
     Active Substance: CHLORPROMAZINE
     Dosage: 3900 MG
  3. SUVOREXANT [Suspect]
     Active Substance: SUVOREXANT
     Dosage: 1120 MG
  4. ESCITALOPRAM [Suspect]
     Active Substance: ESCITALOPRAM OXALATE
     Dosage: 560 MG

REACTIONS (2)
  - Neuroleptic malignant syndrome [Recovering/Resolving]
  - Overdose [Unknown]
